FAERS Safety Report 5573811-7 (Version None)
Quarter: 2007Q4

REPORT INFORMATION
  Report Type: 
  Country: None (occurrence: None)
  Receive Date: 20071226
  Receipt Date: 20071214
  Transmission Date: 20080405
  Serious: Yes (Hospitalization, Other)
  Sender: FDA-Public Use
  Company Number: US-PFIZER INC-2007087607

PATIENT
  Sex: Female
  Weight: 81.818 kg

DRUGS (4)
  1. CHANTIX [Suspect]
     Indication: EX-SMOKER
     Dates: start: 20070922, end: 20071011
  2. VICODIN [Concomitant]
  3. IBUPROFEN [Concomitant]
  4. SKELAXIN [Concomitant]
     Indication: MUSCLE SPASMS

REACTIONS (11)
  - ABDOMINAL PAIN [None]
  - ABNORMAL DREAMS [None]
  - BLOOD AMYLASE INCREASED [None]
  - BLOOD TEST ABNORMAL [None]
  - DIVERTICULITIS [None]
  - FLATULENCE [None]
  - LIPASE INCREASED [None]
  - MUSCLE SPASMS [None]
  - NAUSEA [None]
  - PYREXIA [None]
  - STOMACH DISCOMFORT [None]
